FAERS Safety Report 8330336-3 (Version None)
Quarter: 2012Q2

REPORT INFORMATION
  Report Type: 
  Country: None (occurrence: None)
  Receive Date: 20120502
  Receipt Date: 20120426
  Transmission Date: 20120825
  Serious: Yes (Hospitalization)
  Sender: FDA-Public Use
  Company Number: US-ACTELION-A-NJ2012-63740

PATIENT

DRUGS (4)
  1. TRACLEER [Suspect]
     Dosage: 62.5 MG, BID
     Route: 048
     Dates: start: 20100930, end: 20110119
  2. COUMADIN [Concomitant]
  3. TRACLEER [Suspect]
     Indication: PULMONARY ARTERIAL HYPERTENSION
     Dosage: 125 MG, BID
     Route: 048
     Dates: start: 20110120
  4. VENTAVIS [Suspect]
     Indication: PULMONARY ARTERIAL HYPERTENSION
     Dosage: UNK
     Route: 055
     Dates: start: 20100120

REACTIONS (12)
  - UNRESPONSIVE TO STIMULI [None]
  - DIZZINESS [None]
  - CHRONIC OBSTRUCTIVE PULMONARY DISEASE [None]
  - DYSPNOEA [None]
  - ABDOMINAL PAIN UPPER [None]
  - HYPOXIA [None]
  - SYNCOPE [None]
  - GALLBLADDER OEDEMA [None]
  - CARDIAC DISORDER [None]
  - PULMONARY HYPERTENSION [None]
  - HYPOTENSION [None]
  - DYSPNOEA EXERTIONAL [None]
